FAERS Safety Report 10618870 (Version 1)
Quarter: 2014Q4

REPORT INFORMATION
  Report Type: Spontaneous
  Country: GB (occurrence: None)
  Receive Date: 20141126
  Receipt Date: 20141126
  Transmission Date: 20150529
  Serious: Yes (Other)
  Sender: FDA-Public Use
  Company Number: NL01PV14.37989

PATIENT
  Sex: Male

DRUGS (1)
  1. TAMSULOSIN [Suspect]
     Active Substance: TAMSULOSIN
     Indication: POLLAKIURIA

REACTIONS (4)
  - Loss of consciousness [None]
  - Dizziness [None]
  - Thrombosis [None]
  - Fall [None]
